FAERS Safety Report 12059207 (Version 1)
Quarter: 2016Q1

REPORT INFORMATION
  Report Type: Spontaneous
  Country: US (occurrence: None)
  Receive Date: 20160209
  Receipt Date: 20160209
  Transmission Date: 20160526
  Serious: No
  Sender: FDA-Public Use
  Company Number: None

PATIENT
  Age: 13 Year
  Sex: Male
  Weight: 61.24 kg

DRUGS (1)
  1. METHYLPHENIDATE HYDROCHLORIDE. [Suspect]
     Active Substance: METHYLPHENIDATE HYDROCHLORIDE
     Indication: ATTENTION DEFICIT/HYPERACTIVITY DISORDER
     Route: 048
     Dates: start: 20160112, end: 20160204

REACTIONS (4)
  - Product substitution issue [None]
  - Feeling abnormal [None]
  - Discomfort [None]
  - Tachyphrenia [None]

NARRATIVE: CASE EVENT DATE: 20160208
